FAERS Safety Report 7873520-5 (Version None)
Quarter: 2011Q4

REPORT INFORMATION
  Report Type: 
  Country: None (occurrence: None)
  Receive Date: 20111030
  Receipt Date: 20110505
  Transmission Date: 20120403
  Serious: No
  Sender: FDA-Public Use
  Company Number: US-AMGEN-USASP2011023429

PATIENT
  Sex: Female

DRUGS (2)
  1. ENBREL [Suspect]
     Indication: PSORIATIC ARTHROPATHY
     Dosage: UNK
     Dates: start: 20100901, end: 20110412
  2. ENBREL [Suspect]
     Indication: PSORIASIS

REACTIONS (2)
  - ARTHRALGIA [None]
  - PSORIASIS [None]
